FAERS Safety Report 5138053-8 (Version None)
Quarter: 2006Q4

REPORT INFORMATION
  Report Type: 
  Country: None (occurrence: None)
  Receive Date: 20061030
  Receipt Date: 20060407
  Transmission Date: 20070319
  Serious: No
  Sender: FDA-Public Use
  Company Number: US-GLAXOSMITHKLINE-A0600922A

PATIENT
  Age: 55 Year
  Sex: Female

DRUGS (5)
  1. ADVAIR HFA [Suspect]
     Indication: BRONCHITIS
     Route: 055
     Dates: start: 20060403
  2. AZITHROMYCIN [Suspect]
     Indication: BRONCHITIS
     Dosage: 500MG PER DAY
     Route: 048
     Dates: start: 20060403
  3. PROCARDIA [Concomitant]
  4. FOSAMAX [Concomitant]
  5. ASPIRIN [Concomitant]

REACTIONS (2)
  - AGEUSIA [None]
  - ANOSMIA [None]
